FAERS Safety Report 13674873 (Version 1)
Quarter: 2017Q2

REPORT INFORMATION
  Report Type: Spontaneous
  Country: US (occurrence: US)
  Receive Date: 20170621
  Receipt Date: 20170621
  Transmission Date: 20170830
  Serious: No
  Sender: FDA-Public Use
  Company Number: US-PFIZER INC-2017268351

PATIENT
  Age: 17 Year
  Sex: Female
  Weight: 50 kg

DRUGS (2)
  1. EUCRISA [Suspect]
     Active Substance: CRISABOROLE
     Indication: ECZEMA
     Dosage: UNK, 2X/DAY (USE TWICE A DAY, ONCE IN THE MORNING AND ONCE AT NIGHT)
     Dates: start: 20170613
  2. EUCRISA [Suspect]
     Active Substance: CRISABOROLE
     Indication: RASH

REACTIONS (1)
  - Burning sensation [Not Recovered/Not Resolved]

NARRATIVE: CASE EVENT DATE: 20170613
